FAERS Safety Report 10311328 (Version 1)
Quarter: 2014Q3

REPORT INFORMATION
  Report Type: Spontaneous
  Country: US (occurrence: US)
  Receive Date: 20140717
  Receipt Date: 20140717
  Transmission Date: 20150326
  Serious: Yes (Death)
  Sender: FDA-Public Use
  Company Number: US-BRISTOL-MYERS SQUIBB COMPANY-21148457

PATIENT
  Age: 82 Year
  Sex: Male

DRUGS (11)
  1. BYETTA [Suspect]
     Active Substance: EXENATIDE
     Dates: start: 20051120, end: 201205
  2. FINASTERIDE. [Concomitant]
     Active Substance: FINASTERIDE
     Route: 048
  3. STARLIX [Concomitant]
     Active Substance: NATEGLINIDE
     Route: 048
  4. GLYBURIDE. [Concomitant]
     Active Substance: GLYBURIDE
     Route: 048
  5. CREON [Concomitant]
     Active Substance: PANCRELIPASE AMYLASE\PANCRELIPASE LIPASE\PANCRELIPASE PROTEASE
     Dosage: CAPS
     Route: 048
  6. FLOMAX [Concomitant]
     Active Substance: TAMSULOSIN HYDROCHLORIDE
     Dosage: 2CAPS
     Route: 048
  7. NOVOLOG [Concomitant]
     Active Substance: INSULIN ASPART
  8. SPIRONOLACTONE. [Concomitant]
     Active Substance: SPIRONOLACTONE
     Route: 048
  9. TORSEMIDE. [Concomitant]
     Active Substance: TORSEMIDE
     Route: 048
  10. INSULIN ASPART [Concomitant]
     Active Substance: INSULIN ASPART
  11. PRADAXA [Concomitant]
     Active Substance: DABIGATRAN ETEXILATE MESYLATE
     Route: 048

REACTIONS (1)
  - Pancreatic carcinoma [Fatal]

NARRATIVE: CASE EVENT DATE: 20121213
